FAERS Safety Report 5323960-3 (Version None)
Quarter: 2007Q2

REPORT INFORMATION
  Report Type: 
  Country: None (occurrence: None)
  Receive Date: 20070509
  Receipt Date: 20070509
  Transmission Date: 20071010
  Serious: Yes (Other)
  Sender: FDA-Public Use
  Company Number: None

PATIENT
  Age: 55 Year
  Sex: Male
  Weight: 84.369 kg

DRUGS (2)
  1. LACTULOSE [Suspect]
     Indication: BLOOD BILIRUBIN INCREASED
     Dosage: 30 CC QDAY PO
     Route: 048
     Dates: start: 20070410, end: 20070506
  2. LACTULOSE [Suspect]
     Indication: ENCEPHALOPATHY
     Dosage: 30 CC QDAY PO
     Route: 048
     Dates: start: 20070410, end: 20070506

REACTIONS (5)
  - AMNESIA [None]
  - CONFUSIONAL STATE [None]
  - DIARRHOEA [None]
  - DISTURBANCE IN ATTENTION [None]
  - SLEEP DISORDER [None]
